FAERS Safety Report 7684123-X (Version None)
Quarter: 2011Q3

REPORT INFORMATION
  Report Type: 
  Country: None (occurrence: None)
  Receive Date: 20110815
  Receipt Date: 20110805
  Transmission Date: 20111222
  Serious: Yes (Hospitalization, Other)
  Sender: FDA-Public Use
  Company Number: US-BAYER-200924130NA

PATIENT
  Age: 66 Year
  Sex: Male
  Weight: 70 kg

DRUGS (36)
  1. TRASYLOL [Suspect]
     Indication: CORONARY ARTERY BYPASS
     Dosage: 1 ML, ONCE
     Route: 042
     Dates: start: 20030124, end: 20030124
  2. ENALAPRIL MALEATE [Concomitant]
     Dosage: 2.5 MG, QD
     Route: 048
     Dates: start: 20030116
  3. FERROUS GLUCONATE [Concomitant]
     Dosage: 300 MG, BID
     Route: 048
  4. COLACE [Concomitant]
     Dosage: 100 MG, QD
     Route: 048
  5. QUININE SULFATE [Concomitant]
     Dosage: 260 MG, HS
     Route: 048
  6. ETOMIDATE [Concomitant]
     Dosage: UNK
     Route: 042
     Dates: start: 20030124, end: 20030124
  7. CEFUROXIME [Concomitant]
     Dosage: UNK
     Route: 042
     Dates: start: 20030124, end: 20030124
  8. RED BLOOD CELLS [Concomitant]
     Dosage: 1 U, UNK
     Dates: start: 20030124, end: 20030124
  9. PLATELETS [Concomitant]
     Dosage: 3 U, UNK
     Dates: start: 20030124, end: 20030124
  10. OPTIRAY 300 [Concomitant]
     Dosage: 130 ML, UNK
     Dates: start: 20030117
  11. TRASYLOL [Suspect]
     Dosage: 50CC-100CC/HR, UNK
     Route: 042
     Dates: start: 20030124, end: 20030124
  12. HUMIBID L.A. [Concomitant]
     Dosage: 1200 MG, BID
  13. TRASYLOL [Suspect]
     Indication: MITRAL VALVE REPAIR
     Dosage: 200 MG, ONCE
     Route: 042
     Dates: start: 20030124, end: 20030124
  14. SIMVASTATIN [Concomitant]
     Dosage: 40 MG, QD
     Route: 048
  15. METOPROLOL TARTRATE [Concomitant]
     Dosage: 25 MG, BID
     Route: 048
  16. ATROPINE [Concomitant]
     Dosage: UNK
     Route: 042
     Dates: start: 20030124, end: 20030124
  17. EPINEPHRINE [Concomitant]
     Dosage: 0.5 MCG/MIN, UNK
     Route: 042
     Dates: start: 20030124
  18. PROTAMINE [Concomitant]
     Dosage: 250 MG, UNK
     Route: 042
     Dates: start: 20030124, end: 20030124
  19. PAPAVERINE [Concomitant]
     Dosage: 2 ML, UNK
     Dates: start: 20030124, end: 20030124
  20. ALDACTONE [Concomitant]
     Route: 048
  21. AUGMENTIN '125' [Concomitant]
     Dosage: 2 TABS, BID
     Route: 048
  22. VECURONIUM BROMIDE [Concomitant]
     Dosage: UNK
     Route: 042
     Dates: start: 20030124, end: 20030124
  23. PLATELETS [Concomitant]
  24. LASIX [Concomitant]
     Dosage: 40 MG, UNK
     Route: 042
  25. CEFAZOLIN [Concomitant]
     Dosage: 1 G, UNK
     Dates: start: 20030124, end: 20030124
  26. BACITRACIN [Concomitant]
     Dosage: 25000 U, UNK
     Route: 061
     Dates: start: 20030124, end: 20030124
  27. ACETYLSALICYLIC ACID SRT [Concomitant]
     Dosage: 325 MG, QD
     Route: 048
  28. MIDAZOLAM HCL [Concomitant]
     Dosage: 2 MG, BOLUS CONTINUOUSLY
     Route: 042
     Dates: start: 20030124, end: 20030124
  29. HEPARIN [Concomitant]
     Dosage: UNK
     Dates: start: 20030124, end: 20030124
  30. PLASMALYTE [GLUCOSE,POTASSIUM CHLORIDE] [Concomitant]
     Dosage: UNK
     Dates: start: 20030124, end: 20030124
  31. FRESH FROZEN PLASMA [Concomitant]
     Dosage: 3 U, UNK
     Dates: start: 20030124, end: 20030124
  32. FRESH FROZEN PLASMA [Concomitant]
     Dosage: 3 U, UNK
     Dates: start: 20030124, end: 20030124
  33. FENTANYL [Concomitant]
     Dosage: 100 MCG/HR, UNK
     Route: 042
     Dates: start: 20030124
  34. MILRINONE [Concomitant]
     Dosage: UNK
     Route: 042
     Dates: start: 20030124
  35. THROMBIN LOCAL SOLUTION [Concomitant]
     Dosage: 20,000 UNK, UNK
     Route: 061
     Dates: start: 20030124, end: 20030124
  36. RED BLOOD CELLS [Concomitant]
     Dosage: 4 U, UNK
     Dates: start: 20030124, end: 20030124

REACTIONS (12)
  - ANHEDONIA [None]
  - UNEVALUABLE EVENT [None]
  - EMOTIONAL DISTRESS [None]
  - MULTI-ORGAN FAILURE [None]
  - STRESS [None]
  - RENAL INJURY [None]
  - PAIN [None]
  - RENAL FAILURE [None]
  - FEAR [None]
  - INJURY [None]
  - ANXIETY [None]
  - RENAL IMPAIRMENT [None]
